FAERS Safety Report 13062743 (Version 1)
Quarter: 2016Q4

REPORT INFORMATION
  Report Type: Report from Study
  Country: GB (occurrence: GB)
  Receive Date: 20161226
  Receipt Date: 20161226
  Transmission Date: 20170207
  Serious: Yes (Life-Threatening)
  Sender: FDA-Public Use
  Company Number: PHHY2016GB175361

PATIENT
  Weight: 140.61 kg

DRUGS (2)
  1. COSENTYX [Suspect]
     Active Substance: SECUKINUMAB
     Indication: URINARY TRACT INFECTION
  2. COSENTYX [Suspect]
     Active Substance: SECUKINUMAB
     Indication: SINUSITIS
     Dosage: 150 MG, QMO
     Route: 058
     Dates: start: 20160510, end: 20161207

REACTIONS (2)
  - Product use issue [Unknown]
  - Lung infection [Recovering/Resolving]

NARRATIVE: CASE EVENT DATE: 20161205
